FAERS Safety Report 24435021 (Version 2)
Quarter: 2024Q4

REPORT INFORMATION
  Report Type: Spontaneous
  Country: US (occurrence: US)
  Receive Date: 20241014
  Receipt Date: 20241018
  Transmission Date: 20250115
  Serious: No
  Sender: AMGEN
  Company Number: US-AMGEN-USASP2024198153

PATIENT
  Age: 86 Year
  Sex: Female

DRUGS (1)
  1. EVENITY [Suspect]
     Active Substance: ROMOSOZUMAB-AQQG
     Indication: Product used for unknown indication
     Dosage: UNK
     Route: 065

REACTIONS (9)
  - Muscular weakness [Unknown]
  - Gait inability [Unknown]
  - Sacral pain [Unknown]
  - Arthralgia [Unknown]
  - Glomerular filtration rate decreased [Unknown]
  - Vision blurred [Not Recovered/Not Resolved]
  - Therapeutic product effect incomplete [Unknown]
  - Injury [Unknown]
  - Fatigue [Not Recovered/Not Resolved]

NARRATIVE: CASE EVENT DATE: 20241004
